FAERS Safety Report 8132344-4 (Version None)
Quarter: 2012Q1

REPORT INFORMATION
  Report Type: 
  Country: None (occurrence: None)
  Receive Date: 20120213
  Receipt Date: 20120202
  Transmission Date: 20120608
  Serious: Yes (Other)
  Sender: FDA-Public Use
  Company Number: CA-JNJFOC-20120201887

PATIENT
  Sex: Female
  Weight: 83 kg

DRUGS (6)
  1. REMICADE [Suspect]
     Route: 042
     Dates: start: 20120202
  2. METHOTREXATE [Concomitant]
     Route: 065
  3. ANTI-ANXIETY MEDICATIONS [Concomitant]
     Indication: ANXIETY
     Route: 065
  4. PAXIL [Concomitant]
     Dosage: 20 PILLS/DAY
     Route: 048
  5. REMICADE [Suspect]
     Indication: ANKYLOSING SPONDYLITIS
     Route: 042
     Dates: start: 20100618
  6. PRILOSEC [Concomitant]
     Route: 065

REACTIONS (5)
  - ANXIETY [None]
  - INFUSION RELATED REACTION [None]
  - PANIC REACTION [None]
  - PRESYNCOPE [None]
  - ABNORMAL FAECES [None]
